FAERS Safety Report 16065616 (Version 2)
Quarter: 2019Q2

REPORT INFORMATION
  Report Type: Spontaneous
  Country: JP (occurrence: JP)
  Receive Date: 20190313
  Receipt Date: 20190403
  Transmission Date: 20190711
  Serious: Yes (Hospitalization)
  Sender: FDA-Public Use
  Company Number: JP-ASTELLAS-2019JP003916

PATIENT
  Age: 9 Decade
  Sex: Female

DRUGS (7)
  1. XOSPATA [Suspect]
     Active Substance: GILTERITINIB
     Route: 048
     Dates: start: 20190318
  2. VESICARE [Suspect]
     Active Substance: SOLIFENACIN SUCCINATE
     Indication: PRODUCT USED FOR UNKNOWN INDICATION
     Route: 048
  3. XOSPATA [Suspect]
     Active Substance: GILTERITINIB
     Indication: ACUTE MYELOID LEUKAEMIA RECURRENT
     Route: 048
     Dates: start: 20190124, end: 20190228
  4. BAYASPIRINA MIGRANA [Concomitant]
     Indication: PRODUCT USED FOR UNKNOWN INDICATION
     Dosage: 100 MG/DAY, UNKNOWN FREQ.
     Route: 048
  5. HYDREA [Concomitant]
     Active Substance: HYDROXYUREA
     Indication: PRODUCT USED FOR UNKNOWN INDICATION
     Dosage: 2000 MG/DAY, UNKNOWN FREQ.
     Route: 048
     Dates: start: 20181227, end: 20190123
  6. LOXOPROFEN [Concomitant]
     Active Substance: LOXOPROFEN
     Indication: PRODUCT USED FOR UNKNOWN INDICATION
     Dosage: UNK UNK, UNKNOWN FREQ.
     Route: 050
  7. AMLODIPINE [Concomitant]
     Active Substance: AMLODIPINE BESYLATE
     Indication: PRODUCT USED FOR UNKNOWN INDICATION
     Dosage: 5 MG/DAY, UNKNOWN FREQ.
     Route: 048

REACTIONS (3)
  - Pyrexia [Recovered/Resolved]
  - Laboratory test abnormal [Recovered/Resolved]
  - Blood lactate dehydrogenase increased [Recovered/Resolved]

NARRATIVE: CASE EVENT DATE: 20190220
